FAERS Safety Report 17397537 (Version 1)
Quarter: 2020Q1

REPORT INFORMATION
  Report Type: Spontaneous
  Country: US (occurrence: US)
  Receive Date: 20200210
  Receipt Date: 20200210
  Transmission Date: 20200409
  Serious: Yes (Other)
  Sender: FDA-Public Use
  Company Number: US-BOIRON INC.-2020BOR00039

PATIENT
  Age: 5 Month
  Sex: Female

DRUGS (1)
  1. CAMILIA (HOMEOPATHIC) [Suspect]
     Active Substance: HOMEOPATHICS
     Indication: TEETHING
     Dosage: ^OFF AND ON^ FOR SEVERAL MONTHS

REACTIONS (2)
  - Respiratory arrest [Unknown]
  - Sedation [Unknown]
